FAERS Safety Report 9535037 (Version 3)
Quarter: 2013Q4

REPORT INFORMATION
  Report Type: Spontaneous
  Country: US (occurrence: US)
  Receive Date: 20130918
  Receipt Date: 20131105
  Transmission Date: 20140711
  Serious: Yes (Other)
  Sender: FDA-Public Use
  Company Number: US-TEVA-432960USA

PATIENT
  Age: 36 Year
  Sex: Female
  Weight: 73.09 kg

DRUGS (2)
  1. MODAFINIL [Suspect]
     Indication: HYPERSOMNIA
     Dates: start: 20130913, end: 20130913
  2. MODAFINIL [Suspect]
     Indication: SLEEP APNOEA SYNDROME

REACTIONS (6)
  - Choking [Recovered/Resolved]
  - Drug hypersensitivity [Recovered/Resolved]
  - Dyspnoea [Recovered/Resolved]
  - Cough [Recovered/Resolved]
  - Rash [Recovered/Resolved]
  - Anaphylactic shock [Recovered/Resolved]
